FAERS Safety Report 5630712-3 (Version None)
Quarter: 2008Q1

REPORT INFORMATION
  Report Type: 
  Country: None (occurrence: None)
  Receive Date: 20080219
  Receipt Date: 20080211
  Transmission Date: 20080703
  Serious: Yes (Hospitalization)
  Sender: FDA-Public Use
  Company Number: US-ELI_LILLY_AND_COMPANY-US200802002449

PATIENT
  Age: 57 Year
  Sex: Male

DRUGS (2)
  1. HUMALOG [Suspect]
     Dosage: 6 U, WITH FOOD
     Dates: start: 20080123
  2. LANTUS [Concomitant]

REACTIONS (11)
  - ABDOMINAL DISTENSION [None]
  - ASTHENIA [None]
  - BLOOD GLUCOSE DECREASED [None]
  - BLOOD GLUCOSE INCREASED [None]
  - BLOOD POTASSIUM ABNORMAL [None]
  - BLOOD PRESSURE INCREASED [None]
  - BLOOD SODIUM ABNORMAL [None]
  - CLAUSTROPHOBIA [None]
  - DRY MOUTH [None]
  - GASTRIC DISORDER [None]
  - NASOPHARYNGITIS [None]
